FAERS Safety Report 5235680-4 (Version None)
Quarter: 2007Q1

REPORT INFORMATION
  Report Type: 
  Country: None (occurrence: None)
  Receive Date: 20070212
  Receipt Date: 20070131
  Transmission Date: 20070707
  Serious: Yes (Other)
  Sender: FDA-Public Use
  Company Number: US-ROCHE-481012

PATIENT
  Age: 53 Year
  Sex: Female

DRUGS (2)
  1. RIBAVIRIN [Suspect]
     Route: 065
  2. PEG-INTERFERON ALFA 2B [Suspect]
     Route: 065

REACTIONS (3)
  - PANCYTOPENIA [None]
  - PROTEINURIA [None]
  - RENAL FAILURE ACUTE [None]
